FAERS Safety Report 6209296-7 (Version None)
Quarter: 2009Q2

REPORT INFORMATION
  Report Type: 
  Country: None (occurrence: None)
  Receive Date: 20090529
  Receipt Date: 20090525
  Transmission Date: 20091009
  Serious: Yes (Life-Threatening, Hospitalization)
  Sender: FDA-Public Use
  Company Number: FR-PFIZER INC-2009217505

PATIENT
  Age: 81 Year

DRUGS (5)
  1. CELEBREX [Suspect]
     Indication: PAIN
     Dosage: 200 MG, 1X/DAY
     Route: 048
     Dates: start: 20081101, end: 20090412
  2. NEXIUM [Concomitant]
     Indication: PROPHYLAXIS AGAINST GASTROINTESTINAL ULCER
     Dosage: 20 MG, 1X/DAY
     Route: 048
     Dates: start: 20080901, end: 20090412
  3. ZOLPIDEM [Concomitant]
  4. CACIT D3 [Concomitant]
  5. DAFALGAN [Concomitant]

REACTIONS (2)
  - COLITIS ISCHAEMIC [None]
  - SHOCK [None]
